FAERS Safety Report 6056951-8 (Version None)
Quarter: 2009Q1

REPORT INFORMATION
  Report Type: 
  Country: None (occurrence: None)
  Receive Date: 20090123
  Receipt Date: 20090123
  Transmission Date: 20090719
  Serious: Yes (Other)
  Sender: FDA-Public Use
  Company Number: None

PATIENT
  Age: 54 Year
  Sex: Male
  Weight: 82 kg

DRUGS (2)
  1. CONSTIPAL (DEXBROMPHENIRAMINE MALEATE/PSEUDOEPHEDRINE SULFATE) (DEXBRO [Suspect]
     Indication: HYPERTENSION
     Dosage: 1 DF; QD; PO
     Route: 048
     Dates: start: 20081114, end: 20081114
  2. CONSTIPAL (DEXBROMPHENIRAMINE MALEATE/PSEUDOEPHEDRINE SULFATE) (DEXBRO [Suspect]
     Indication: OFF LABEL USE
     Dosage: 1 DF; QD; PO
     Route: 048
     Dates: start: 20081114, end: 20081114

REACTIONS (4)
  - HYPERTENSION [None]
  - PALPITATIONS [None]
  - TACHYCARDIA [None]
  - VOMITING [None]
